FAERS Safety Report 25487908 (Version 1)
Quarter: 2025Q2

REPORT INFORMATION
  Report Type: Spontaneous
  Country: US (occurrence: US)
  Receive Date: 20250627
  Receipt Date: 20250627
  Transmission Date: 20250716
  Serious: Yes (Disabling, Other)
  Sender: ACCORD
  Company Number: US-Accord-491529

PATIENT
  Age: 83 Year
  Sex: Male

DRUGS (1)
  1. MITOMYCIN [Suspect]
     Active Substance: MITOMYCIN

REACTIONS (6)
  - Ocular toxicity [Not Recovered/Not Resolved]
  - Choroidal detachment [Not Recovered/Not Resolved]
  - Toxic anterior segment syndrome [Not Recovered/Not Resolved]
  - Product administration error [Unknown]
  - Retinal detachment [Not Recovered/Not Resolved]
  - Blindness [Not Recovered/Not Resolved]
